FAERS Safety Report 21102248 (Version 1)
Quarter: 2022Q3

REPORT INFORMATION
  Report Type: Spontaneous
  Country: CN (occurrence: None)
  Receive Date: 20220719
  Receipt Date: 20220719
  Transmission Date: 20221026
  Serious: Yes (Hospitalization)
  Sender: FDA-Public Use
  Company Number: CN-Eisai Medical Research-EC-2022-118862

PATIENT
  Age: 57 Year
  Sex: Male
  Weight: 52.5 kg

DRUGS (3)
  1. LENVIMA [Suspect]
     Active Substance: LENVATINIB
     Indication: Hepatic cancer
     Route: 048
     Dates: start: 20220421, end: 20220424
  2. LENVIMA [Suspect]
     Active Substance: LENVATINIB
     Route: 048
     Dates: start: 20220502, end: 20220527
  3. ENVAFOLIMAB [Concomitant]
     Active Substance: ENVAFOLIMAB
     Indication: Hepatic cancer
     Route: 058
     Dates: start: 20220421, end: 20220421

REACTIONS (4)
  - Ammonia increased [Recovering/Resolving]
  - Occult blood positive [Unknown]
  - Vomiting [Recovering/Resolving]
  - Asthenia [Recovering/Resolving]

NARRATIVE: CASE EVENT DATE: 20220424
